FAERS Safety Report 5385080-1 (Version None)
Quarter: 2007Q3

REPORT INFORMATION
  Report Type: 
  Country: None (occurrence: None)
  Receive Date: 20070710
  Receipt Date: 20070710
  Transmission Date: 20080115
  Serious: No
  Sender: FDA-Public Use
  Company Number: None

PATIENT
  Sex: Female
  Weight: 74.3899 kg

DRUGS (1)
  1. AMLODIPINE [Suspect]
     Indication: HYPERTENSION
     Dosage: 10MG 1 DAILY PO
     Route: 048
     Dates: start: 20070420

REACTIONS (3)
  - DIZZINESS [None]
  - PALPITATIONS [None]
  - STOMACH DISCOMFORT [None]
